FAERS Safety Report 5013743-6 (Version None)
Quarter: 2006Q2

REPORT INFORMATION
  Report Type: 
  Country: None (occurrence: None)
  Receive Date: 20060526
  Receipt Date: 20060526
  Transmission Date: 20061013
  Serious: No
  Sender: FDA-Public Use
  Company Number: None

PATIENT
  Age: 42 Year
  Sex: Female

DRUGS (2)
  1. PROZAC [Suspect]
     Dosage: CAPSULE
  2. PRILOSEC [Suspect]
     Dosage: CAPSULE , DELAYED RELEASE

REACTIONS (9)
  - ANXIETY [None]
  - DRUG DISPENSING ERROR [None]
  - FATIGUE [None]
  - HEADACHE [None]
  - INSOMNIA [None]
  - MEDICATION ERROR [None]
  - MICTURITION DISORDER [None]
  - PALPITATIONS [None]
  - WRONG DRUG ADMINISTERED [None]
